FAERS Safety Report 22225253 (Version 3)
Quarter: 2024Q2

REPORT INFORMATION
  Report Type: Other
  Country: US (occurrence: None)
  Receive Date: 20230418
  Receipt Date: 20240502
  Transmission Date: 20240716
  Serious: Yes (Other)
  Sender: FDA-Public Use
  Company Number: US-ROCHE-3332056

PATIENT
  Age: 60 Year
  Sex: Female

DRUGS (15)
  1. ACTEMRA [Suspect]
     Active Substance: TOCILIZUMAB
     Indication: Rheumatoid arthritis
     Route: 058
  2. ACTEMRA [Suspect]
     Active Substance: TOCILIZUMAB
  3. ACTEMRA [Suspect]
     Active Substance: TOCILIZUMAB
     Route: 058
     Dates: start: 20201029, end: 20211206
  4. ACTEMRA [Suspect]
     Active Substance: TOCILIZUMAB
  5. METOPROLOL [Concomitant]
     Active Substance: METOPROLOL
  6. PLAQUENIL [Concomitant]
     Active Substance: HYDROXYCHLOROQUINE SULFATE
  7. METHOTREXATE [Concomitant]
     Active Substance: METHOTREXATE
  8. HUMIRA [Concomitant]
     Active Substance: ADALIMUMAB
  9. PREDNISONE [Concomitant]
     Active Substance: PREDNISONE
  10. ENBREL [Concomitant]
     Active Substance: BENZYL ALCOHOL\ETANERCEPT
  11. SULFASALAZINE [Concomitant]
     Active Substance: SULFASALAZINE
  12. ALPRAZOLAM [Concomitant]
     Active Substance: ALPRAZOLAM
  13. APIXABAN [Concomitant]
     Active Substance: APIXABAN
  14. BACLOFEN [Concomitant]
     Active Substance: BACLOFEN
  15. ROSUVASTATIN [Concomitant]
     Active Substance: ROSUVASTATIN

REACTIONS (12)
  - Atrial fibrillation [Unknown]
  - Hypersensitivity [Unknown]
  - Pruritus [Unknown]
  - Erythema [Unknown]
  - Rash [Unknown]
  - Synovial cyst [Unknown]
  - Exostosis [Unknown]
  - Hepatic steatosis [Unknown]
  - Neuropathy peripheral [Unknown]
  - Hypercoagulation [Unknown]
  - COVID-19 [Unknown]
  - Factor V Leiden mutation [Unknown]
